FAERS Safety Report 22522830 (Version 2)
Quarter: 2023Q2

REPORT INFORMATION
  Report Type: Spontaneous
  Country: HU (occurrence: HU)
  Receive Date: 20230605
  Receipt Date: 20230627
  Transmission Date: 20230721
  Serious: Yes (Life-Threatening, Hospitalization, Other)
  Sender: FDA-Public Use
  Company Number: None

PATIENT
  Age: 85 Year
  Sex: Female

DRUGS (5)
  1. AMLODIPINE [Suspect]
     Active Substance: AMLODIPINE BESYLATE
     Indication: Atrial fibrillation
     Dosage: UNK, FOR A LONG TIME
     Route: 065
  2. POTASSIUM CHLORIDE [Suspect]
     Active Substance: POTASSIUM CHLORIDE
     Indication: Mineral supplementation
     Dosage: UNK, FOR A LONG TIME
     Route: 065
  3. FUROSEMIDE [Suspect]
     Active Substance: FUROSEMIDE
     Indication: Diuretic therapy
     Dosage: UNK, FOR A LONG TIME
     Route: 065
  4. COUMARIN [Suspect]
     Active Substance: COUMARIN
     Indication: Atrial fibrillation
     Dosage: UNK, FOR A LONG TIME
     Route: 065
  5. PERINDOPRIL [Suspect]
     Active Substance: PERINDOPRIL
     Indication: Atrial fibrillation
     Dosage: UNK
     Route: 065

REACTIONS (1)
  - Drug ineffective [Unknown]
